FAERS Safety Report 13801716 (Version 1)
Quarter: 2017Q3

REPORT INFORMATION
  Report Type: Spontaneous
  Country: PH (occurrence: PH)
  Receive Date: 20170727
  Receipt Date: 20170727
  Transmission Date: 20171127
  Serious: Yes (Other)
  Sender: FDA-Public Use
  Company Number: PH-GLAXOSMITHKLINE-PH2017115834

PATIENT
  Age: 43 Year
  Sex: Male

DRUGS (2)
  1. ACITRETIN. [Suspect]
     Active Substance: ACITRETIN
     Indication: GRANULOMA
     Dosage: 30 MG, UNK
     Route: 065
  2. PSORALEN [Concomitant]
     Active Substance: PSORALEN
     Indication: GRANULOMA
     Dosage: PLUS ULTRAVIOLET A THERAPY (RE-PUVA)
     Route: 048

REACTIONS (3)
  - Photosensitivity reaction [Unknown]
  - Erythema [Unknown]
  - Pain of skin [Unknown]
